FAERS Safety Report 17800581 (Version 1)
Quarter: 2020Q2

REPORT INFORMATION
  Report Type: Spontaneous
  Country: CA (occurrence: CA)
  Receive Date: 20200519
  Receipt Date: 20200519
  Transmission Date: 20200714
  Serious: Yes (Other)
  Sender: FDA-Public Use
  Company Number: CA-ROCHE-2596058

PATIENT
  Age: 37 Year
  Sex: Female
  Weight: 71 kg

DRUGS (8)
  1. BENADRYL [Concomitant]
     Active Substance: DIPHENHYDRAMINE HYDROCHLORIDE
     Indication: PREMEDICATION
     Route: 048
  2. PERJETA [Suspect]
     Active Substance: PERTUZUMAB
     Dosage: THERAPY DURATION 239 DAYS
     Route: 042
  3. TRASTUZUMAB. [Suspect]
     Active Substance: TRASTUZUMAB
     Indication: HER2 POSITIVE BREAST CANCER
     Route: 065
  4. DOXORUBICIN [Concomitant]
     Active Substance: DOXORUBICIN
     Route: 042
  5. CYCLOPHOSPHAMIDE. [Concomitant]
     Active Substance: CYCLOPHOSPHAMIDE
  6. TAMOXIFEN [Concomitant]
     Active Substance: TAMOXIFEN
     Indication: BREAST CANCER
  7. PERJETA [Suspect]
     Active Substance: PERTUZUMAB
     Indication: HER2 POSITIVE BREAST CANCER
     Dosage: THERAPY DURATION 1 DAY
     Route: 042
  8. ACETAMINOPHEN. [Concomitant]
     Active Substance: ACETAMINOPHEN
     Route: 048

REACTIONS (20)
  - Arthropathy [Recovered/Resolved]
  - Breast mass [Recovered/Resolved]
  - Renal cyst [Recovered/Resolved]
  - Blood pressure systolic abnormal [Recovered/Resolved]
  - Nasopharyngitis [Recovered/Resolved]
  - Blood urine present [Recovered/Resolved]
  - Device related thrombosis [Recovered/Resolved]
  - Device occlusion [Recovered/Resolved]
  - Immunodeficiency [Recovered/Resolved]
  - Weight decreased [Recovered/Resolved]
  - White blood cells urine positive [Recovered/Resolved]
  - Catheter site pain [Recovered/Resolved]
  - Hypertrophic osteoarthropathy [Recovered/Resolved]
  - Influenza [Recovered/Resolved]
  - Osteosclerosis [Recovered/Resolved]
  - Rib fracture [Recovered/Resolved]
  - Vascular device infection [Recovered/Resolved]
  - Cardiac infection [Recovered/Resolved]
  - Hepatic steatosis [Recovered/Resolved]
  - Myalgia [Recovered/Resolved]
